FAERS Safety Report 14268841 (Version 1)
Quarter: 2017Q4

REPORT INFORMATION
  Report Type: Spontaneous
  Country: CN (occurrence: CN)
  Receive Date: 20171211
  Receipt Date: 20171211
  Transmission Date: 20180321
  Serious: Yes (Hospitalization)
  Sender: FDA-Public Use
  Company Number: CN-SA-2017SA237365

PATIENT
  Age: 31 Year
  Sex: Male

DRUGS (1)
  1. CLOMIFENE CITRATE [Suspect]
     Active Substance: CLOMIPHENE
     Indication: OLIGOSPERMIA
     Route: 065

REACTIONS (14)
  - Aspartate aminotransferase increased [Recovered/Resolved]
  - Cholecystitis [Unknown]
  - Abdominal pain upper [Recovered/Resolved]
  - Bilirubin conjugated increased [Recovered/Resolved]
  - Protein urine present [Recovered/Resolved]
  - Urobilinogen urine [Recovered/Resolved]
  - Jaundice [Recovered/Resolved]
  - Gamma-glutamyltransferase increased [Recovered/Resolved]
  - Off label use [Unknown]
  - Chromaturia [Recovered/Resolved]
  - Blood bilirubin increased [Recovered/Resolved]
  - Alanine aminotransferase increased [Recovered/Resolved]
  - Drug-induced liver injury [Recovered/Resolved]
  - Occult blood positive [Recovered/Resolved]
